FAERS Safety Report 5424674-1 (Version None)
Quarter: 2007Q3

REPORT INFORMATION
  Report Type: 
  Country: None (occurrence: None)
  Receive Date: 20070822
  Receipt Date: 20070822
  Transmission Date: 20080115
  Serious: Yes (Hospitalization)
  Sender: FDA-Public Use
  Company Number: None

PATIENT
  Age: 66 Year
  Sex: Female
  Weight: 95 kg

DRUGS (1)
  1. DOBUTAMINE HCL [Suspect]
     Indication: STRESS ECHOCARDIOGRAM
     Dates: start: 20070803

REACTIONS (7)
  - CEREBRAL VASOCONSTRICTION [None]
  - CORONARY ARTERIAL STENT INSERTION [None]
  - HEADACHE [None]
  - INFUSION RELATED REACTION [None]
  - ISCHAEMIC STROKE [None]
  - MENTAL STATUS CHANGES POSTOPERATIVE [None]
  - VASCULITIS [None]
